FAERS Safety Report 24400130 (Version 1)
Quarter: 2024Q4

REPORT INFORMATION
  Report Type: Spontaneous
  Country: CZ (occurrence: CZ)
  Receive Date: 20241005
  Receipt Date: 20241005
  Transmission Date: 20250115
  Serious: Yes (Hospitalization, Other)
  Sender: OXFORD PHARMACEUTICALS
  Company Number: CZ-Oxford Pharmaceuticals, LLC-2162521

PATIENT
  Age: 49 Year
  Sex: Male

DRUGS (4)
  1. PAROXETINE HYDROCHLORIDE [Suspect]
     Active Substance: PAROXETINE HYDROCHLORIDE
     Indication: Agoraphobia
  2. CLONAZEPAM [Suspect]
     Active Substance: CLONAZEPAM
  3. METOPROLOL [Concomitant]
     Active Substance: METOPROLOL
  4. ALPRAZOLAM [Suspect]
     Active Substance: ALPRAZOLAM

REACTIONS (5)
  - Toxicity to various agents [Recovered/Resolved]
  - Delirium [Recovered/Resolved]
  - Intentional overdose [Recovered/Resolved]
  - Drug-genetic interaction [Recovered/Resolved]
  - Suicide attempt [Recovered/Resolved]
